FAERS Safety Report 7116875-1 (Version None)
Quarter: 2010Q4

REPORT INFORMATION
  Report Type: 
  Country: None (occurrence: None)
  Receive Date: 20101122
  Receipt Date: 20101110
  Transmission Date: 20110411
  Serious: Yes (Other)
  Sender: FDA-Public Use
  Company Number: US-ELI_LILLY_AND_COMPANY-US201011003155

PATIENT
  Sex: Female

DRUGS (9)
  1. ALIMTA [Suspect]
     Dosage: 700 MG/1.5MM2, EVERY 21 DAYS
     Route: 065
     Dates: start: 20091007
  2. ALIMTA [Suspect]
     Dosage: 700 MG/1.5MM2, EVERY 21 DAYS
     Route: 065
     Dates: start: 20091007
  3. PERCOCET [Concomitant]
     Dosage: UNK, UNKNOWN
     Route: 065
  4. DEXAMETHASONE [Concomitant]
     Dosage: UNK, UNKNOWN
     Route: 065
  5. VITAMIN B-12 [Concomitant]
     Dosage: UNK, UNKNOWN
     Route: 065
  6. FOLIC ACID [Concomitant]
     Dosage: UNK, UNKNOWN
     Route: 065
  7. MEGESTROL ACETATE [Concomitant]
     Dosage: UNK, UNKNOWN
     Route: 065
  8. VENTILAN [Concomitant]
     Dosage: UNK, UNKNOWN
     Route: 065
  9. ATROVENT [Concomitant]
     Dosage: UNK, UNKNOWN
     Route: 065

REACTIONS (1)
  - VASCULITIS NECROTISING [None]
